FAERS Safety Report 21337482 (Version 1)
Quarter: 2022Q3

REPORT INFORMATION
  Report Type: Spontaneous
  Country: US (occurrence: None)
  Receive Date: 20220914
  Receipt Date: 20220914
  Transmission Date: 20221027
  Serious: Yes (Life-Threatening, Hospitalization)
  Sender: FDA-Public Use
  Company Number: None

PATIENT
  Age: 20 Year
  Sex: Male
  Weight: 73.58 kg

DRUGS (10)
  1. DIVALPROEX SODIUM [Suspect]
     Active Substance: DIVALPROEX SODIUM
     Indication: Mania
     Dosage: 2000 MG DAILY ORAL
     Route: 048
     Dates: start: 20220724, end: 20220731
  2. prednisone 20 mg by mouth daily for three days [Concomitant]
     Dates: start: 20220730, end: 20220801
  3. haloperidol 10mg by mouth daily [Concomitant]
  4. loratadine 10mg by mouth daily [Concomitant]
  5. famotidine 20 mg by mouth twice daily [Concomitant]
  6. olanzapine ODT 20 mg by mouth daily at bedtime [Concomitant]
  7. triamcinolone 0.1% cream topically twice daily [Concomitant]
  8. haloperidol 5mg by mouth every 8 hours as needed for agitation [Concomitant]
  9. haloperidol 5mg IM every 6 hours as needed for agitation [Concomitant]
  10. Lorazepam 2mg by mouth as needed for agitation [Concomitant]

REACTIONS (5)
  - Tremor [None]
  - Fatigue [None]
  - Tachycardia [None]
  - Therapeutic product effect decreased [None]
  - Therapy cessation [None]

NARRATIVE: CASE EVENT DATE: 20220730
